FAERS Safety Report 6184658-5 (Version None)
Quarter: 2009Q2

REPORT INFORMATION
  Report Type: 
  Country: None (occurrence: None)
  Receive Date: 20090508
  Receipt Date: 20090501
  Transmission Date: 20091009
  Serious: Yes (Other)
  Sender: FDA-Public Use
  Company Number: GB-TEVA-193513ISR

PATIENT
  Age: 57 Year
  Sex: Male

DRUGS (1)
  1. SIMVASTATIN [Suspect]
     Indication: HYPERLIPIDAEMIA

REACTIONS (2)
  - CONDITION AGGRAVATED [None]
  - INSPIRATORY CAPACITY DECREASED [None]
